FAERS Safety Report 4335616-4 (Version None)
Quarter: 2004Q2

REPORT INFORMATION
  Report Type: 
  Country: None (occurrence: None)
  Receive Date: 20040409
  Receipt Date: 20040220
  Transmission Date: 20050107
  Serious: Yes (Life-Threatening, Hospitalization)
  Sender: FDA-Public Use
  Company Number: US-MERCK-0402USA01607

PATIENT
  Age: 64 Year
  Sex: Male

DRUGS (10)
  1. ASPIRIN [Concomitant]
     Route: 048
  2. ASPIRIN [Concomitant]
     Route: 065
  3. ATACAND [Concomitant]
     Indication: HYPERTENSION
     Route: 048
     Dates: start: 20000701
  4. PLAVIX [Concomitant]
     Route: 048
  5. PROCARDIA XL [Concomitant]
     Route: 048
  6. ZOLOFT [Concomitant]
     Route: 048
  7. ZOCOR [Suspect]
     Indication: BLOOD CHOLESTEROL INCREASED
     Route: 048
     Dates: start: 20000901, end: 20010201
  8. ZOCOR [Suspect]
     Route: 048
     Dates: start: 20010201, end: 20010701
  9. ZOCOR [Suspect]
     Route: 048
     Dates: start: 20010701, end: 20020101
  10. TERAZOSIN HYDROCHLORIDE [Concomitant]
     Route: 048
     Dates: end: 20010223

REACTIONS (18)
  - ADVERSE EVENT [None]
  - ANXIETY [None]
  - ATAXIA [None]
  - CHEST DISCOMFORT [None]
  - CHEST PAIN [None]
  - DIZZINESS [None]
  - HEADACHE [None]
  - HEART RATE INCREASED [None]
  - INSOMNIA [None]
  - NERVOUSNESS [None]
  - ORTHOSTATIC HYPOTENSION [None]
  - POLLAKIURIA [None]
  - RHABDOMYOLYSIS [None]
  - SINUSITIS [None]
  - SYNCOPE [None]
  - TRANSIENT ISCHAEMIC ATTACK [None]
  - TREMOR [None]
  - URINARY INCONTINENCE [None]
